FAERS Safety Report 6568674-7 (Version None)
Quarter: 2010Q1

REPORT INFORMATION
  Report Type: 
  Country: None (occurrence: None)
  Receive Date: 20100203
  Receipt Date: 20100121
  Transmission Date: 20100710
  Serious: Yes (Hospitalization)
  Sender: FDA-Public Use
  Company Number: PHEH2010US01267

PATIENT
  Age: 83 Year
  Sex: Female
  Weight: 62.585 kg

DRUGS (21)
  1. RECLAST [Suspect]
     Indication: OSTEOPOROSIS
     Dosage: 5 MG ONCE YEARLY
     Route: 042
  2. INFLUENZA VIRUS VACCINE - UNKNOWN INN (NVD) [Suspect]
     Indication: IMMUNISATION
  3. AMBIEN [Concomitant]
  4. ZETIA [Concomitant]
  5. HYDROCODONE [Concomitant]
  6. FUROSEMIDE [Concomitant]
  7. BENAZEPRIL HYDROCHLORIDE [Concomitant]
  8. OMEPRAZOLE [Concomitant]
  9. PLAVIX [Concomitant]
  10. FISH OIL [Concomitant]
  11. RANEXA [Concomitant]
  12. CARAFATE [Concomitant]
  13. ASPIRIN [Concomitant]
  14. TOPROL-XL [Concomitant]
  15. KLOR-CON [Concomitant]
  16. CALCIUM [Concomitant]
  17. PROMETHAZINE [Concomitant]
  18. DARVOCET-N 100 [Concomitant]
  19. LOTENSIN [Concomitant]
  20. ISOSORBIDE MONONITRATE [Concomitant]
  21. NIASPAN [Concomitant]

REACTIONS (3)
  - CATHETERISATION CARDIAC [None]
  - CHEST PAIN [None]
  - CHILLS [None]
